FAERS Safety Report 9516347 (Version 1)
Quarter: 2013Q3

REPORT INFORMATION
  Report Type: Spontaneous
  Country: DE (occurrence: None)
  Receive Date: 20130909
  Receipt Date: 20130909
  Transmission Date: 20140515
  Serious: Yes (Other)
  Sender: FDA-Public Use
  Company Number: AUR-APL-2013-07314

PATIENT
  Age: 64 Year
  Sex: Male
  Weight: 87 kg

DRUGS (13)
  1. TAMSULOSIN [Suspect]
     Indication: PRODUCT USED FOR UNKNOWN INDICATION
  2. FORXIGA (DAPAGLIFLOZIN) [Concomitant]
  3. ALPHA-LIPONSAEURE- (THIOCTIC ACID) [Concomitant]
  4. BEOFENAC(ACECLOFENAC) [Concomitant]
  5. GODAMED(ACETYLSALICYLIC ACID) [Concomitant]
  6. LYRICA(PREGABALIN) [Concomitant]
  7. METFORMIN(METFORMIN) [Concomitant]
  8. MILGAMMA(MILGAMMA [Concomitant]
  9. LANTUS(INSULIN GLARGINE) [Concomitant]
  10. LOOOL(FLUVASTATIN SODIUM) [Concomitant]
  11. ENAHEXAL(ENALAPRIL MALEATE) [Concomitant]
  12. PROSTAGUTT FORTE(PROSTAKAN FORTE) [Concomitant]
  13. NAFTILONG(NAFTIDROFURYL OXALATE) [Concomitant]

REACTIONS (1)
  - Erectile dysfunction [None]
